FAERS Safety Report 5448199-2 (Version None)
Quarter: 2007Q3

REPORT INFORMATION
  Report Type: 
  Country: None (occurrence: None)
  Receive Date: 20070906
  Receipt Date: 20070822
  Transmission Date: 20080115
  Serious: Yes (Other)
  Sender: FDA-Public Use
  Company Number: 2007RR-09523

PATIENT
  Age: 52 Year
  Sex: Female
  Weight: 131 kg

DRUGS (9)
  1. SIMVASTATIN [Suspect]
     Indication: BLOOD CHOLESTEROL INCREASED
     Dosage: 40 , ORAL
     Route: 048
     Dates: start: 20070705, end: 20070719
  2. AMITRIPTYLINE HCL [Concomitant]
  3. CO-DYDRAMOL TABLETS (DIHYDRALAZINE TARTRATE, PARACETAMOL) [Concomitant]
  4. ESCITALOPRAM OXALATE [Concomitant]
  5. GABAPENTIN BASICS B FILMTABLETTEN [Concomitant]
  6. OMEPRAZOLE [Concomitant]
  7. ALBUTEROL [Concomitant]
  8. SYMBICORT [Concomitant]
  9. TRAMADOL HYDROCHLORIDE (TRAMADOL) [Concomitant]

REACTIONS (5)
  - ASTHMA [None]
  - BLOOD CREATINE PHOSPHOKINASE INCREASED [None]
  - CONDITION AGGRAVATED [None]
  - MUSCLE SPASMS [None]
  - MYALGIA [None]
